FAERS Safety Report 9926436 (Version 1)
Quarter: 2014Q1

REPORT INFORMATION
  Report Type: Spontaneous
  Country: US (occurrence: US)
  Receive Date: 20140226
  Receipt Date: 20140226
  Transmission Date: 20141002
  Serious: No
  Sender: FDA-Public Use
  Company Number: US-AMGEN-USASP2013069838

PATIENT
  Age: 12 Year
  Sex: Female
  Weight: 68.03 kg

DRUGS (5)
  1. ENBREL [Suspect]
     Indication: PRODUCT USED FOR UNKNOWN INDICATION
     Dosage: 50 MG, QWK
     Route: 058
     Dates: start: 201306
  2. ZYRTEC [Concomitant]
     Dosage: 5 MG, UNK
  3. TYLENOL CHILDREN^S [Concomitant]
     Dosage: 80 MG, UNK
  4. MELOXICAM [Concomitant]
     Dosage: 15 MG, UNK
  5. VITAMIN D                          /00107901/ [Concomitant]
     Dosage: UNK

REACTIONS (4)
  - Injection site bruising [Unknown]
  - Pain [Unknown]
  - Injection site urticaria [Unknown]
  - Injection site pain [Unknown]
